FAERS Safety Report 5656219-5 (Version None)
Quarter: 2008Q1

REPORT INFORMATION
  Report Type: 
  Country: None (occurrence: None)
  Receive Date: 20080305
  Receipt Date: 20080229
  Transmission Date: 20080703
  Serious: Yes (Death)
  Sender: FDA-Public Use
  Company Number: 2007SP024236

PATIENT
  Age: 83 Year
  Sex: Female
  Weight: 62 kg

DRUGS (2)
  1. TEMODAL [Suspect]
     Indication: GLIOBLASTOMA
     Dosage: 150 MG/M2; ; PO, 200 MG/M2; ; PO
     Route: 048
     Dates: start: 20070919, end: 20070923
  2. TEMODAL [Suspect]
     Indication: GLIOBLASTOMA
     Dosage: 150 MG/M2; ; PO, 200 MG/M2; ; PO
     Route: 048
     Dates: start: 20070820

REACTIONS (2)
  - DISEASE PROGRESSION [None]
  - GLIOBLASTOMA [None]
